FAERS Safety Report 10232348 (Version 1)
Quarter: 2014Q2

REPORT INFORMATION
  Report Type: Spontaneous
  Country: US (occurrence: None)
  Receive Date: 20140610
  Receipt Date: 20140610
  Transmission Date: 20141212
  Serious: Yes (Disabling, Other)
  Sender: FDA-Public Use
  Company Number: None

PATIENT
  Age: 98 Year
  Sex: Female
  Weight: 56.7 kg

DRUGS (23)
  1. CARAFATE [Suspect]
     Indication: DYSPEPSIA
     Dosage: 10 ML/MOUTH - 1 HR. BEFORE MEALS AT BEDTIME
     Route: 048
     Dates: start: 20140507, end: 20140515
  2. CARAFATE [Suspect]
     Indication: CHEST PAIN
     Dosage: 10 ML/MOUTH - 1 HR. BEFORE MEALS AT BEDTIME
     Route: 048
     Dates: start: 20140507, end: 20140515
  3. CARAFATE [Suspect]
     Dosage: 10 ML/MOUTH - 1 HR. BEFORE MEALS AT BEDTIME
     Route: 048
     Dates: start: 20140507, end: 20140515
  4. COZAR [Concomitant]
  5. PROPRANOLOL [Concomitant]
  6. GLIMPEPO [Concomitant]
  7. PLAVIX [Concomitant]
  8. FAMTONE [Concomitant]
  9. XANPX [Concomitant]
  10. MELATINE [Concomitant]
  11. COLOP [Concomitant]
  12. CQ10 [Concomitant]
  13. D3 [Concomitant]
  14. POTASSIUM NITRATE [Concomitant]
  15. SELENIUM [Concomitant]
  16. PROBIOTIC [Concomitant]
  17. IRON [Concomitant]
  18. BONE ESSENTIALS [Concomitant]
  19. C500 BUFFERED [Concomitant]
  20. B 50 [Concomitant]
  21. LYSENE [Concomitant]
  22. ZINC [Concomitant]
  23. CHOLEX X PLUS [Concomitant]

REACTIONS (3)
  - Pain [None]
  - Abasia [None]
  - Back pain [None]
